FAERS Safety Report 5571472-4 (Version None)
Quarter: 2007Q4

REPORT INFORMATION
  Report Type: 
  Country: None (occurrence: None)
  Receive Date: 20071221
  Receipt Date: 20071212
  Transmission Date: 20080405
  Serious: Yes (Death)
  Sender: FDA-Public Use
  Company Number: NL-ROCHE-536822

PATIENT

DRUGS (2)
  1. CAPECITABINE [Suspect]
     Indication: GASTRIC CANCER
     Route: 065
  2. CAPECITABINE [Suspect]
     Dosage: DOSING AMOUNT REPORTED AS 650, 800, 900, OR 1000 MG/M E2
     Route: 065

REACTIONS (1)
  - DEATH [None]
